FAERS Safety Report 9312726 (Version 1)
Quarter: 2013Q2

REPORT INFORMATION
  Report Type: Spontaneous
  Country: US (occurrence: US)
  Receive Date: 20130528
  Receipt Date: 20130528
  Transmission Date: 20140414
  Serious: Yes (Other)
  Sender: FDA-Public Use
  Company Number: US-PFIZER INC-2013158665

PATIENT
  Age: 60 Year
  Sex: Female
  Weight: 52.61 kg

DRUGS (3)
  1. XANAX [Suspect]
     Indication: ANXIETY
     Dosage: 0.5 MG, UNK
     Route: 048
     Dates: start: 2003
  2. XANAX [Suspect]
     Indication: PANIC ATTACK
  3. PEPCID [Concomitant]
     Dosage: 10 MG, 2X/DAY

REACTIONS (3)
  - Meniere^s disease [Unknown]
  - Vertigo [Unknown]
  - Panic attack [Unknown]
